FAERS Safety Report 6165581-9 (Version None)
Quarter: 2009Q2

REPORT INFORMATION
  Report Type: 
  Country: None (occurrence: None)
  Receive Date: 20090423
  Receipt Date: 20090331
  Transmission Date: 20091009
  Serious: No
  Sender: FDA-Public Use
  Company Number: US-JNJFOC-20090400457

PATIENT
  Age: 15 Year
  Sex: Male

DRUGS (3)
  1. INVEGA [Suspect]
     Indication: BIPOLAR DISORDER
     Route: 048
  2. MELATONIN [Concomitant]
     Indication: SLEEP DISORDER THERAPY
  3. MOTRIN [Concomitant]
     Indication: PAIN

REACTIONS (3)
  - DRUG INEFFECTIVE [None]
  - SHOPLIFTING [None]
  - TREATMENT NONCOMPLIANCE [None]
